FAERS Safety Report 6534964-7 (Version None)
Quarter: 2010Q1

REPORT INFORMATION
  Report Type: 
  Country: None (occurrence: None)
  Receive Date: 20100111
  Receipt Date: 20100111
  Transmission Date: 20100710
  Serious: No
  Sender: FDA-Public Use
  Company Number: None

PATIENT
  Age: 78 Year
  Sex: Male
  Weight: 79.7 kg

DRUGS (1)
  1. LENALIDOMIDE [Suspect]
     Indication: MULTIPLE MYELOMA
     Dosage: 10 MG EVERY DAY PO
     Route: 048
     Dates: start: 20090608, end: 20090827

REACTIONS (14)
  - CARDIAC DISORDER [None]
  - CONSTIPATION [None]
  - COUGH [None]
  - DEPRESSION [None]
  - DIZZINESS [None]
  - DYSPNOEA [None]
  - FATIGUE [None]
  - MENSTRUAL DISORDER [None]
  - NEUTROPENIA [None]
  - RASH [None]
  - SWELLING [None]
  - URINARY TRACT DISORDER [None]
  - VERTIGO [None]
  - VISUAL IMPAIRMENT [None]
